FAERS Safety Report 5006176-X (Version None)
Quarter: 2006Q1

REPORT INFORMATION
  Report Type: 
  Country: None (occurrence: None)
  Receive Date: 20060327
  Receipt Date: 20051129
  Transmission Date: 20060701
  Serious: No
  Sender: FDA-Public Use
  Company Number: 218948

PATIENT
  Age: 75 Year
  Sex: Female

DRUGS (4)
  1. AVASTIN [Suspect]
     Indication: RENAL CELL CARCINOMA STAGE UNSPECIFIED
     Dates: start: 20050401
  2. TARCEVA [Suspect]
     Indication: RENAL CELL CARCINOMA STAGE UNSPECIFIED
     Dosage: 150 MG, QD, ORAL, 100 MG, QD
     Route: 048
     Dates: start: 20050601
  3. VERAPAMIL [Concomitant]
  4. DIURETIC NOS [Concomitant]

REACTIONS (4)
  - CONJUNCTIVITIS [None]
  - DIARRHOEA [None]
  - KERATITIS [None]
  - RASH [None]
